FAERS Safety Report 5155991-0 (Version None)
Quarter: 2006Q4

REPORT INFORMATION
  Report Type: 
  Country: None (occurrence: None)
  Receive Date: 20061122
  Receipt Date: 20060831
  Transmission Date: 20070319
  Serious: Yes (Hospitalization)
  Sender: FDA-Public Use
  Company Number: FRWYE820231AUG06

PATIENT
  Sex: Female

DRUGS (10)
  1. ENBREL [Suspect]
     Indication: MIXED CONNECTIVE TISSUE DISEASE
     Route: 058
     Dates: start: 20041001, end: 20060629
  2. CORTANCYL [Concomitant]
     Route: 048
     Dates: start: 20041001
  3. FOSAMAX [Concomitant]
     Dosage: 70 MG EVERY 1 SEC
     Route: 048
     Dates: start: 20041001, end: 20060601
  4. NEXIUM [Concomitant]
     Dosage: UNKNOWN
     Route: 048
  5. COLECALCIFEROL [Concomitant]
     Dosage: UNKNOWN
     Route: 048
  6. SPECIAFOLDINE [Concomitant]
     Route: 048
  7. ICAZ [Concomitant]
     Dosage: UNKNOWN
     Route: 048
  8. NOVATREX [Concomitant]
     Route: 048
     Dates: start: 20041001, end: 20060701
  9. NOVATREX [Concomitant]
     Route: 048
     Dates: start: 20060701
  10. CALCIUM [Concomitant]
     Dosage: UNKNOWN
     Route: 048

REACTIONS (6)
  - CATARACT [None]
  - DNA ANTIBODY POSITIVE [None]
  - HIP ARTHROPLASTY [None]
  - NAIL BED INFECTION [None]
  - RASH [None]
  - SYSTEMIC LUPUS ERYTHEMATOSUS [None]
